FAERS Safety Report 5239040-1 (Version None)
Quarter: 2007Q1

REPORT INFORMATION
  Report Type: 
  Country: None (occurrence: None)
  Receive Date: 20061208
  Receipt Date: 20050630
  Transmission Date: 20070707
  Serious: Yes (Other)
  Sender: FDA-Public Use
  Company Number: 2005UW09892

PATIENT
  Age: 81 Year
  Sex: Female
  Weight: 68.038 kg

DRUGS (12)
  1. CRESTOR [Suspect]
     Indication: BLOOD CHOLESTEROL INCREASED
     Dosage: 10 MG QD PO
     Route: 048
  2. ZETIA [Concomitant]
  3. TENORMIN [Concomitant]
  4. PREVACID [Concomitant]
  5. DYAZIDE [Concomitant]
  6. GLUCOSAMINE [Concomitant]
  7. CHONDROITIN A [Concomitant]
  8. OMEGA 3 [Concomitant]
  9. CALCIUM [Concomitant]
  10. MAGNESIUM [Concomitant]
  11. ASPIRIN [Concomitant]
  12. PERI-COLACE [Concomitant]

REACTIONS (1)
  - FAECES DISCOLOURED [None]
